FAERS Safety Report 5599436-5 (Version None)
Quarter: 2008Q1

REPORT INFORMATION
  Report Type: 
  Country: None (occurrence: None)
  Receive Date: 20080122
  Receipt Date: 20080110
  Transmission Date: 20080703
  Serious: Yes (Hospitalization)
  Sender: FDA-Public Use
  Company Number: FR-PFIZER INC-2008003283

PATIENT
  Sex: Male

DRUGS (11)
  1. ZYVOXID TABLET [Suspect]
     Indication: NOCARDIOSIS
     Route: 048
     Dates: start: 20071004, end: 20071203
  2. BACTRIM [Suspect]
     Indication: NOCARDIOSIS
     Dosage: TEXT:2 DF
     Route: 048
     Dates: start: 20070822, end: 20071203
  3. BACTRIM [Suspect]
     Dates: start: 20071209, end: 20071211
  4. ROCEPHIN [Suspect]
     Indication: NOCARDIOSIS
     Dosage: DAILY DOSE:2GRAM
     Route: 042
     Dates: start: 20070826, end: 20071203
  5. ROCEPHIN [Suspect]
  6. VIBRAMYCIN [Suspect]
     Indication: NOCARDIOSIS
     Dosage: DAILY DOSE:100MG
     Route: 048
     Dates: start: 20070822, end: 20071004
  7. THALIDOMIDE [Suspect]
     Indication: MULTIPLE MYELOMA
     Dosage: DAILY DOSE:50MG-FREQ:DAILY
     Route: 048
  8. ARANESP [Suspect]
     Indication: MULTIPLE MYELOMA
     Dosage: DAILY DOSE:300MCG-FREQ:WEEKLY
     Route: 058
  9. KARDEGIC [Suspect]
     Dosage: DAILY DOSE:160MG
     Route: 048
  10. SPECIAFOLDINE [Suspect]
     Route: 048
  11. DURAGESIC-100 [Suspect]
     Route: 062

REACTIONS (1)
  - HEPATITIS CHOLESTATIC [None]
